FAERS Safety Report 18901846 (Version 1)
Quarter: 2021Q1

REPORT INFORMATION
  Report Type: Spontaneous
  Country: US (occurrence: US)
  Receive Date: 20210216
  Receipt Date: 20210216
  Transmission Date: 20210420
  Serious: No
  Sender: FDA-Public Use
  Company Number: US-MYLANLABS-2021M1007667

PATIENT
  Sex: Female

DRUGS (2)
  1. LOSARTAN. [Concomitant]
     Active Substance: LOSARTAN
     Dosage: UNK
  2. METOPROLOL SUCCINATE EXTENDED?RELEASE TABLETS, USP [Suspect]
     Active Substance: METOPROLOL SUCCINATE
     Indication: HYPERTENSION
     Dosage: HALF TABLET/ DAY
     Route: 048

REACTIONS (4)
  - Blood pressure fluctuation [Not Recovered/Not Resolved]
  - Blood pressure measurement [Recovering/Resolving]
  - Drug ineffective [Recovered/Resolved]
  - Dose calculation error [Not Recovered/Not Resolved]
